FAERS Safety Report 14328925 (Version 2)
Quarter: 2019Q4

REPORT INFORMATION
  Report Type: Spontaneous
  Country: US (occurrence: US)
  Receive Date: 20171227
  Receipt Date: 20191202
  Transmission Date: 20200122
  Serious: No
  Sender: FDA-Public Use
  Company Number: US-PFIZER INC-2017549639

PATIENT
  Age: 58 Year
  Sex: Female

DRUGS (2)
  1. LYRICA [Suspect]
     Active Substance: PREGABALIN
     Indication: FIBROMYALGIA
     Dosage: 100 MG, DAILY
  2. LYRICA [Suspect]
     Active Substance: PREGABALIN
     Dosage: 225 MG, TWICE A DAY
     Route: 048

REACTIONS (1)
  - Pain in extremity [Recovered/Resolved]
